FAERS Safety Report 13603409 (Version 1)
Quarter: 2017Q2

REPORT INFORMATION
  Report Type: Spontaneous
  Country: US (occurrence: US)
  Receive Date: 20170601
  Receipt Date: 20170601
  Transmission Date: 20170912
  Serious: No
  Sender: FDA-Public Use
  Company Number: US-OTSUKA-2016_027715

PATIENT
  Sex: Male
  Weight: 15 kg

DRUGS (6)
  1. SILDENAFIL [Concomitant]
     Indication: PRODUCT USED FOR UNKNOWN INDICATION
     Dosage: UNK
     Route: 065
  2. SAMSCA [Suspect]
     Indication: FLUID IMBALANCE
  3. SAMSCA [Suspect]
     Indication: PROTEIN-LOSING GASTROENTEROPATHY
     Dosage: 1/4 OF A 15 MG TABLET MIXED IN 2.5 ML WATER DAILY (QD)
     Route: 048
     Dates: start: 20161119
  4. BOSENTAN. [Concomitant]
     Active Substance: BOSENTAN
     Indication: PRODUCT USED FOR UNKNOWN INDICATION
     Dosage: UNK
     Route: 065
  5. BUDESONIDE [Concomitant]
     Indication: PRODUCT USED FOR UNKNOWN INDICATION
     Dosage: UNK
     Route: 065
  6. SAMSCA [Suspect]
     Indication: HYPERVOLAEMIA

REACTIONS (4)
  - Underdose [Unknown]
  - Drug administered to patient of inappropriate age [Unknown]
  - Off label use [Unknown]
  - Wrong technique in product usage process [Unknown]

NARRATIVE: CASE EVENT DATE: 20161119
